FAERS Safety Report 6578498-2 (Version None)
Quarter: 2010Q1

REPORT INFORMATION
  Report Type: 
  Country: None (occurrence: None)
  Receive Date: 20100211
  Receipt Date: 20100201
  Transmission Date: 20100710
  Serious: Yes (Hospitalization, Other)
  Sender: FDA-Public Use
  Company Number: PHHY2010TH06485

PATIENT
  Age: 57 Year
  Sex: Male

DRUGS (3)
  1. CYCLOSPORINE [Suspect]
     Indication: RENAL TRANSPLANT
  2. PREDNISOLONE [Suspect]
     Indication: RENAL TRANSPLANT
  3. MYCOPHENOLATE MOFETIL [Suspect]
     Indication: RENAL TRANSPLANT

REACTIONS (12)
  - CARDIOMEGALY [None]
  - CHILLS [None]
  - COUGH [None]
  - HYPOXIA [None]
  - INFLUENZA [None]
  - LUNG INFILTRATION [None]
  - MECHANICAL VENTILATION [None]
  - OXYGEN SUPPLEMENTATION [None]
  - PNEUMONIA [None]
  - PYREXIA [None]
  - RHINORRHOEA [None]
  - TACHYPNOEA [None]
